FAERS Safety Report 4338103-2 (Version None)
Quarter: 2004Q2

REPORT INFORMATION
  Report Type: 
  Country: None (occurrence: None)
  Receive Date: 20040413
  Receipt Date: 20040413
  Transmission Date: 20050107
  Serious: Yes (Other)
  Sender: FDA-Public Use
  Company Number: None

PATIENT
  Age: 43 Year
  Sex: Female
  Weight: 82.5547 kg

DRUGS (3)
  1. BEXTRA [Suspect]
     Indication: ARTHRALGIA
     Dosage: 20 MG DAY ORAL
     Route: 048
     Dates: start: 20040324, end: 20040411
  2. SYNTHROID [Concomitant]
  3. GLUCOSAMINE CHONDROTIN [Concomitant]

REACTIONS (5)
  - PHOTOSENSITIVITY REACTION [None]
  - RASH ERYTHEMATOUS [None]
  - RASH PRURITIC [None]
  - RASH PUSTULAR [None]
  - THERMAL BURN [None]
